FAERS Safety Report 6553074-6 (Version None)
Quarter: 2010Q1

REPORT INFORMATION
  Report Type: 
  Country: None (occurrence: None)
  Receive Date: 20100127
  Receipt Date: 20090623
  Transmission Date: 20100710
  Serious: No
  Sender: FDA-Public Use
  Company Number: A0562267A

PATIENT
  Age: 52 Year
  Sex: Female

DRUGS (10)
  1. IMITREX [Suspect]
     Indication: DRUG USE FOR UNKNOWN INDICATION
     Route: 058
  2. SUMATRIPTAN SUCCINATE [Suspect]
     Route: 058
  3. GSK AUTOINJECTOR [Suspect]
  4. SIMVASTATIN [Concomitant]
     Dosage: 10MG PER DAY
  5. CLONAZEPAM [Concomitant]
     Indication: ANXIETY
     Dosage: 1MG PER DAY
  6. SUMATRIPTAN SUCCINATE [Concomitant]
     Indication: HEADACHE
  7. EFFEXOR XR [Concomitant]
     Dosage: 150MG TWICE PER DAY
  8. VAGIFEM [Concomitant]
     Dosage: 24MCG TWO TIMES PER WEEK
  9. FIORINAL W/CODEINE [Concomitant]
  10. TYLENOL W/ CODEINE NO. 3 [Concomitant]
     Indication: HEADACHE

REACTIONS (2)
  - DRUG INEFFECTIVE [None]
  - PRODUCT QUALITY ISSUE [None]
